FAERS Safety Report 6241497-4 (Version None)
Quarter: 2009Q2

REPORT INFORMATION
  Report Type: 
  Country: None (occurrence: None)
  Receive Date: 20090617
  Receipt Date: 20071107
  Transmission Date: 20091009
  Serious: No
  Sender: FDA-Public Use
  Company Number: 269168

PATIENT
  Age: 51 Year
  Sex: Male

DRUGS (2)
  1. LEVEMIR [Suspect]
     Indication: DIABETES MELLITUS
     Dosage: SUBCUTANEOUS
     Route: 058
     Dates: start: 20070601
  2. HUMULIN /00646001/ (INSULIN HUMAN) [Concomitant]

REACTIONS (1)
  - BLOOD GLUCOSE INCREASED [None]
